FAERS Safety Report 11919595 (Version 1)
Quarter: 2016Q1

REPORT INFORMATION
  Report Type: Spontaneous
  Country: CA (occurrence: CA)
  Receive Date: 20160115
  Receipt Date: 20160115
  Transmission Date: 20160526
  Serious: Yes (Other)
  Sender: FDA-Public Use
  Company Number: CA-ROCHE-1695037

PATIENT
  Age: 77 Year
  Sex: Male
  Weight: 104 kg

DRUGS (10)
  1. PIRFENIDONE [Suspect]
     Active Substance: PIRFENIDONE
     Route: 048
  2. ACETYLSALICYLIC ACID [Concomitant]
     Active Substance: ASPIRIN
  3. PIRFENIDONE [Suspect]
     Active Substance: PIRFENIDONE
     Indication: IDIOPATHIC PULMONARY FIBROSIS
     Route: 048
  4. PANTOPRAZOLE [Concomitant]
     Active Substance: PANTOPRAZOLE SODIUM
  5. PULMICORT TURBUHALER [Concomitant]
     Active Substance: BUDESONIDE
  6. QUININE [Concomitant]
     Active Substance: QUININE
  7. ROSUVASTATIN CALCIUM. [Concomitant]
     Active Substance: ROSUVASTATIN CALCIUM
  8. SALBUTAMOL [Concomitant]
     Active Substance: ALBUTEROL
  9. CANDESARTAN [Concomitant]
     Active Substance: CANDESARTAN
  10. PIRFENIDONE [Suspect]
     Active Substance: PIRFENIDONE
     Route: 048

REACTIONS (4)
  - Squamous cell carcinoma [Recovering/Resolving]
  - Fatigue [Recovering/Resolving]
  - Dyspepsia [Recovering/Resolving]
  - Somnolence [Recovering/Resolving]
